FAERS Safety Report 25039884 (Version 2)
Quarter: 2025Q3

REPORT INFORMATION
  Report Type: Spontaneous
  Country: US (occurrence: US)
  Receive Date: 20250305
  Receipt Date: 20250903
  Transmission Date: 20251021
  Serious: Yes (Other)
  Sender: COOPERSURGICAL
  Company Number: US-COOPERSURGICAL, INC.-2025CPS001335

PATIENT
  Sex: Female
  Weight: 49.887 kg

DRUGS (1)
  1. PARAGARD T 380A [Suspect]
     Active Substance: COPPER
     Indication: Contraception
     Route: 015
     Dates: start: 20151105

REACTIONS (13)
  - Reproductive complication associated with device [Unknown]
  - Device breakage [Recovered/Resolved]
  - Foreign body in reproductive tract [Recovered/Resolved]
  - Complication of device removal [Recovered/Resolved]
  - Procedural pain [Recovered/Resolved]
  - Emotional disorder [Unknown]
  - Uterine pain [Recovered/Resolved]
  - Vulvitis [Unknown]
  - Perineal pain [Unknown]
  - Abnormal uterine bleeding [Recovered/Resolved]
  - Dysmenorrhoea [Unknown]
  - Pelvic pain [Unknown]
  - Vaginal infection [Unknown]

NARRATIVE: CASE EVENT DATE: 20150101
